FAERS Safety Report 19445437 (Version 1)
Quarter: 2021Q2

REPORT INFORMATION
  Report Type: Spontaneous
  Country: JP (occurrence: JP)
  Receive Date: 20210622
  Receipt Date: 20210622
  Transmission Date: 20210717
  Serious: Yes (Death)
  Sender: FDA-Public Use
  Company Number: JP-MTPC-MTPC2021-0014933

PATIENT
  Age: 9 Decade
  Sex: Male

DRUGS (1)
  1. RADICUT INJ. 30MG [Suspect]
     Active Substance: EDARAVONE
     Route: 041
     Dates: start: 20201102

REACTIONS (1)
  - Amyotrophic lateral sclerosis [Fatal]
